FAERS Safety Report 8889344 (Version 1)
Quarter: 2012Q4

REPORT INFORMATION
  Report Type: Spontaneous
  Country: US (occurrence: None)
  Receive Date: 20121102
  Receipt Date: 20121102
  Transmission Date: 20130627
  Serious: Yes (Life-Threatening, Hospitalization)
  Sender: FDA-Public Use
  Company Number: None

PATIENT
  Age: 27 Year
  Sex: Male
  Weight: 66 kg

DRUGS (4)
  1. TORISEL [Suspect]
     Indication: RENAL CANCER
     Dosage: 25 mg every 7 days IV Drip
1st dose 10/17; 2nd 10/25/2012
     Route: 041
     Dates: start: 20121017, end: 20121025
  2. NORMAL SALINE [Concomitant]
  3. DIPHENHYDRAMINE [Concomitant]
  4. FAMOTIDINE [Concomitant]

REACTIONS (1)
  - Convulsion [None]
